FAERS Safety Report 23084021 (Version 5)
Quarter: 2025Q1

REPORT INFORMATION
  Report Type: Report from Study
  Country: SI (occurrence: SI)
  Receive Date: 20231019
  Receipt Date: 20250305
  Transmission Date: 20250409
  Serious: Yes (Death)
  Sender: PFIZER
  Company Number: SI-PFIZER INC-PV202300170836

PATIENT
  Age: 62 Year
  Sex: Male
  Weight: 85 kg

DRUGS (1)
  1. ELRANATAMAB [Suspect]
     Active Substance: ELRANATAMAB
     Indication: Plasma cell myeloma
     Dosage: 76 MG, WEEKLY
     Route: 058
     Dates: start: 20230505

REACTIONS (1)
  - Cardiac arrest [Fatal]

NARRATIVE: CASE EVENT DATE: 20231007
